FAERS Safety Report 16393779 (Version 1)
Quarter: 2019Q3

REPORT INFORMATION
  Report Type: Spontaneous
  Country: US (occurrence: US)
  Receive Date: 20190603
  Receipt Date: 20190603
  Transmission Date: 20191004
  Serious: Yes (Hospitalization)
  Sender: FDA-Public Use
  Company Number: None

PATIENT
  Age: 37 Year
  Sex: Female

DRUGS (11)
  1. ATORVASTATIN [Concomitant]
     Active Substance: ATORVASTATIN
  2. LOSARTAN/HCT [Concomitant]
     Active Substance: HYDROCHLOROTHIAZIDE\LOSARTAN POTASSIUM
  3. NOVOLOG [Concomitant]
     Active Substance: INSULIN ASPART
  4. LINZESS [Concomitant]
     Active Substance: LINACLOTIDE
  5. ENBREL [Suspect]
     Active Substance: ETANERCEPT
     Indication: RHEUMATOID ARTHRITIS
     Dosage: ?          OTHER FREQUENCY:ONCE A WEEK;?
     Route: 058
     Dates: start: 20190207
  6. BYDUREON [Concomitant]
     Active Substance: EXENATIDE
  7. GABAPENTIN. [Concomitant]
     Active Substance: GABAPENTIN
  8. LAMICTAL [Suspect]
     Active Substance: LAMOTRIGINE
  9. DULOXETINE. [Concomitant]
     Active Substance: DULOXETINE
  10. LANTUS [Concomitant]
     Active Substance: INSULIN GLARGINE
  11. LASIX [Concomitant]
     Active Substance: FUROSEMIDE

REACTIONS (2)
  - Hallucination [None]
  - Cardiac failure congestive [None]

NARRATIVE: CASE EVENT DATE: 20190527
